FAERS Safety Report 12170954 (Version 1)
Quarter: 2016Q1

REPORT INFORMATION
  Report Type: Spontaneous
  Country: US (occurrence: None)
  Receive Date: 20160310
  Receipt Date: 20160310
  Transmission Date: 20160526
  Serious: Yes (Disabling, Other)
  Sender: FDA-Public Use
  Company Number: None

PATIENT
  Age: 30 Year
  Sex: Female
  Weight: 70.31 kg

DRUGS (12)
  1. BELSOMRA [Concomitant]
     Active Substance: SUVOREXANT
  2. MIRENA [Suspect]
     Active Substance: LEVONORGESTREL
     Indication: CONTRACEPTION
     Dosage: 1 20 MCG IUD 24 HOURS, 5 YEARS 1 IUD PER 5 YEARS VAGINAL
     Route: 067
     Dates: start: 20160111, end: 20160225
  3. PRISTIQ EXTENDED RELEASE [Concomitant]
     Active Substance: DESVENLAFAXINE SUCCINATE
  4. MELATONIN [Concomitant]
     Active Substance: MELATONIN
  5. MIRENA [Suspect]
     Active Substance: LEVONORGESTREL
     Indication: MENORRHAGIA
     Dosage: 1 20 MCG IUD 24 HOURS, 5 YEARS 1 IUD PER 5 YEARS VAGINAL
     Route: 067
     Dates: start: 20160111, end: 20160225
  6. VYVANSE [Concomitant]
     Active Substance: LISDEXAMFETAMINE DIMESYLATE
  7. MIRALAX [Concomitant]
     Active Substance: POLYETHYLENE GLYCOL 3350
  8. PROBIOTIC [Concomitant]
     Active Substance: PROBIOTICS NOS
  9. MIRENA [Suspect]
     Active Substance: LEVONORGESTREL
     Indication: PREMENSTRUAL SYNDROME
     Dosage: 1 20 MCG IUD 24 HOURS, 5 YEARS 1 IUD PER 5 YEARS VAGINAL
     Route: 067
     Dates: start: 20160111, end: 20160225
  10. CENTRUM MULTIVITAMINS [Concomitant]
     Active Substance: VITAMINS
  11. CITRACAL CALCIUM + VITAMIN D [Concomitant]
  12. VALTREX [Concomitant]
     Active Substance: VALACYCLOVIR HYDROCHLORIDE

REACTIONS (7)
  - Oedema peripheral [None]
  - Insomnia [None]
  - Peripheral swelling [None]
  - Joint swelling [None]
  - Local swelling [None]
  - Carpal tunnel syndrome [None]
  - Swelling face [None]

NARRATIVE: CASE EVENT DATE: 20160111
